FAERS Safety Report 20447703 (Version 1)
Quarter: 2022Q1

REPORT INFORMATION
  Report Type: Spontaneous
  Country: US (occurrence: US)
  Receive Date: 20220209
  Receipt Date: 20220209
  Transmission Date: 20220423
  Serious: No
  Sender: FDA-Public Use
  Company Number: US-009507513-2201USA002717

PATIENT
  Age: 80 Year
  Sex: Male

DRUGS (2)
  1. KEYTRUDA [Suspect]
     Active Substance: PEMBROLIZUMAB
     Indication: Bladder cancer
     Dosage: UNK
     Route: 042
  2. PROPOLIS WAX [Concomitant]
     Active Substance: PROPOLIS WAX
     Dosage: 1 PILL IN THE MORNING AND 1 IN THE EVENING
     Dates: start: 20220105

REACTIONS (1)
  - Therapeutic response unexpected [Unknown]
